FAERS Safety Report 6628861-6 (Version None)
Quarter: 2010Q1

REPORT INFORMATION
  Report Type: 
  Country: None (occurrence: None)
  Receive Date: 20100311
  Receipt Date: 20100301
  Transmission Date: 20100710
  Serious: Yes (Hospitalization)
  Sender: FDA-Public Use
  Company Number: US-ELI_LILLY_AND_COMPANY-US201003000654

PATIENT
  Age: 70 Year
  Sex: Female

DRUGS (2)
  1. ALIMTA [Suspect]
     Indication: NON-SMALL CELL LUNG CANCER
     Dosage: UNK, UNKNOWN
     Route: 065
     Dates: end: 20091201
  2. AVASTIN [Concomitant]
     Dosage: UNK, UNKNOWN
     Route: 065
     Dates: end: 20091201

REACTIONS (4)
  - ASTHENIA [None]
  - DYSPHAGIA [None]
  - OROPHARYNGEAL PAIN [None]
  - THROAT TIGHTNESS [None]
